FAERS Safety Report 9096693 (Version 2)
Quarter: 2014Q1

REPORT INFORMATION
  Report Type: Spontaneous
  Country: FR (occurrence: None)
  Receive Date: 20130124
  Receipt Date: 20140108
  Transmission Date: 20141002
  Serious: Yes (Other)
  Sender: FDA-Public Use
  Company Number: FK201300107

PATIENT
  Age: 52 Year
  Sex: Male

DRUGS (4)
  1. PROPOFOL [Suspect]
     Indication: INDUCTION OF ANAESTHESIA
     Dosage: INTRAVENOUS (NOT OTHERWISE SPECIFIED)
     Route: 042
     Dates: start: 20120820, end: 20120820
  2. CELOCURINE [Suspect]
     Indication: PRODUCT USED FOR UNKNOWN INDICATION
  3. DOLIPRANE (PARACETAMOL) [Concomitant]
  4. NSAID^S (NSAID^S) [Concomitant]

REACTIONS (3)
  - Hypersensitivity [None]
  - Shock [None]
  - Anaesthetic complication [None]
